FAERS Safety Report 17159074 (Version 1)
Quarter: 2019Q4

REPORT INFORMATION
  Report Type: Spontaneous
  Country: US (occurrence: US)
  Receive Date: 20191214
  Receipt Date: 20191214
  Transmission Date: 20200122
  Serious: Yes (Other)
  Sender: FDA-Public Use
  Company Number: None

PATIENT
  Age: 59 Year
  Sex: Female
  Weight: 119.25 kg

DRUGS (8)
  1. BELBUCA [Suspect]
     Active Substance: BUPRENORPHINE HYDROCHLORIDE
     Indication: ANKYLOSING SPONDYLITIS
     Dosage: ?          QUANTITY:1 FILM;?
     Route: 060
     Dates: start: 20191213, end: 20191214
  2. ELIQUIS [Concomitant]
     Active Substance: APIXABAN
  3. METOPROLOL. [Concomitant]
     Active Substance: METOPROLOL
  4. CITALIPRAM [Concomitant]
  5. HCTZ [Concomitant]
     Active Substance: HYDROCHLOROTHIAZIDE
  6. SIMPONI [Concomitant]
     Active Substance: GOLIMUMAB
  7. IBUPROFEN. [Concomitant]
     Active Substance: IBUPROFEN
  8. OXYCODONE [Concomitant]
     Active Substance: OXYCODONE

REACTIONS (9)
  - Gastric disorder [None]
  - Frequent bowel movements [None]
  - Tremor [None]
  - Feeling of body temperature change [None]
  - Anxiety [None]
  - Asthenia [None]
  - Piloerection [None]
  - Heart rate increased [None]
  - Dizziness [None]

NARRATIVE: CASE EVENT DATE: 20191213
